FAERS Safety Report 7073786-8 (Version None)
Quarter: 2010Q4

REPORT INFORMATION
  Report Type: 
  Country: None (occurrence: None)
  Receive Date: 20101029
  Receipt Date: 20100816
  Transmission Date: 20110411
  Serious: No
  Sender: FDA-Public Use
  Company Number: A0876121A

PATIENT
  Age: 79 Year
  Sex: Male

DRUGS (4)
  1. ADVAIR DISKUS 100/50 [Suspect]
     Indication: CHRONIC OBSTRUCTIVE PULMONARY DISEASE
     Dosage: 1PUFF PER DAY
     Route: 055
     Dates: start: 20100714, end: 20100809
  2. ALBUTEROL [Concomitant]
  3. GLYBURIDE [Concomitant]
  4. VITAMINS [Concomitant]

REACTIONS (2)
  - COUGH [None]
  - VISION BLURRED [None]
